FAERS Safety Report 10543635 (Version 1)
Quarter: 2014Q4

REPORT INFORMATION
  Report Type: Spontaneous
  Country: FR (occurrence: FR)
  Receive Date: 20141027
  Receipt Date: 20141027
  Transmission Date: 20150529
  Serious: Yes (Life-Threatening)
  Sender: FDA-Public Use
  Company Number: FR-NOVOPROD-426194

PATIENT
  Age: 56 Year
  Sex: Female

DRUGS (21)
  1. ISOPTIN [Concomitant]
     Active Substance: VERAPAMIL HYDROCHLORIDE
  2. HYDROCORTISONE ROUSSEL             /00028601/ [Suspect]
     Active Substance: HYDROCORTISONE
     Indication: ADRENAL INSUFFICIENCY
     Dosage: 40 MG, QD
     Route: 048
  3. HYDROCORTISONE ROUSSEL             /00028601/ [Suspect]
     Active Substance: HYDROCORTISONE
     Dosage: 80 MG, QD
     Route: 048
  4. CLOXACILLIN [Concomitant]
     Active Substance: CLOXACILLIN
     Dosage: UNK
     Dates: end: 20140903
  5. ALDACTONE [Concomitant]
     Active Substance: SPIRONOLACTONE
     Dosage: 50 MG, QD (1 TABLET IN MORNING))
     Dates: start: 20140905
  6. NOVORAPID [Suspect]
     Active Substance: INSULIN ASPART
     Indication: TYPE 2 DIABETES MELLITUS
     Dosage: UNK
     Route: 058
  7. LEVEMIR [Concomitant]
     Active Substance: INSULIN DETEMIR
  8. POTASSIUM CHLORIDE. [Concomitant]
     Active Substance: POTASSIUM CHLORIDE
     Indication: MINERAL SUPPLEMENTATION
     Dosage: UNK
     Route: 065
     Dates: start: 20140806, end: 20140828
  9. CEFAZOLINE MYLAN [Concomitant]
     Active Substance: CEFAZOLIN SODIUM
     Dosage: UNK
     Dates: start: 20140903
  10. INEXIUM                            /01479302/ [Concomitant]
     Active Substance: ESOMEPRAZOLE MAGNESIUM
  11. INNOVAIR [Concomitant]
     Active Substance: BECLOMETHASONE DIPROPIONATE\FORMOTEROL
  12. EPINITRIL [Concomitant]
     Active Substance: NITROGLYCERIN
  13. SMECTA                             /00837601/ [Concomitant]
  14. PARACETAMOL [Concomitant]
     Active Substance: ACETAMINOPHEN
  15. ORBENINE [Suspect]
     Active Substance: CLOXACILLIN SODIUM
     Indication: STAPHYLOCOCCAL BACTERAEMIA
     Dosage: 12 G, QD
     Route: 030
     Dates: start: 20140822, end: 20140903
  16. CREON [Concomitant]
     Active Substance: PANCRELIPASE AMYLASE\PANCRELIPASE LIPASE\PANCRELIPASE PROTEASE
     Indication: PANCREATIC INSUFFICIENCY
     Dosage: UNK
  17. LEVOTHYROX [Concomitant]
     Active Substance: LEVOTHYROXINE
  18. CARBOMER [Concomitant]
     Active Substance: CARBOMER
  19. FOLIC ACID. [Concomitant]
     Active Substance: FOLIC ACID
  20. REPAGLINIDE. [Concomitant]
     Active Substance: REPAGLINIDE
  21. SPIRIVA [Concomitant]
     Active Substance: TIOTROPIUM BROMIDE MONOHYDRATE

REACTIONS (3)
  - Hypoglycaemia [Unknown]
  - Hyperglycaemia [Recovered/Resolved]
  - Hypokalaemia [Recovered/Resolved]

NARRATIVE: CASE EVENT DATE: 20140828
